FAERS Safety Report 10061122 (Version 3)
Quarter: 2014Q3

REPORT INFORMATION
  Report Type: Report from Study
  Country: AR (occurrence: AR)
  Receive Date: 20140406
  Receipt Date: 20140725
  Transmission Date: 20150326
  Serious: Yes (Other)
  Sender: FDA-Public Use
  Company Number: AR-US-EMD SERONO, INC.-7279630

PATIENT
  Age: 42 Year
  Sex: Female

DRUGS (2)
  1. REBIF [Suspect]
     Active Substance: INTERFERON BETA-1A
     Indication: RELAPSING-REMITTING MULTIPLE SCLEROSIS
     Dates: start: 20060410, end: 20110115
  2. REBIF [Suspect]
     Active Substance: INTERFERON BETA-1A
     Dates: start: 20130822

REACTIONS (7)
  - Treatment noncompliance [Unknown]
  - Stomatitis [Not Recovered/Not Resolved]
  - Arthropod sting [Recovered/Resolved]
  - Mucocutaneous rash [Recovered/Resolved]
  - Multiple sclerosis relapse [Recovering/Resolving]
  - Respiratory disorder [Not Recovered/Not Resolved]
  - Cholecystitis acute [Not Recovered/Not Resolved]

NARRATIVE: CASE EVENT DATE: 20130313
